FAERS Safety Report 9363928 (Version 1)
Quarter: 2013Q2

REPORT INFORMATION
  Report Type: Spontaneous
  Country: IT (occurrence: None)
  Receive Date: 20130618
  Receipt Date: 20130618
  Transmission Date: 20140414
  Serious: Yes (Hospitalization)
  Sender: FDA-Public Use
  Company Number: AUR-APL-2013-04931

PATIENT
  Age: 80 Year
  Sex: Male

DRUGS (8)
  1. SIMVASTATIN (SIMVASTATIN) [Suspect]
     Indication: HYPERCHOLESTEROLAEMIA
     Dosage: 20 MG, 1 D
     Route: 048
     Dates: start: 20130101, end: 20130423
  2. COUMADIN (WARFARIN SODIUM) [Suspect]
     Route: 048
     Dates: start: 20130301, end: 20130322
  3. LASIX [Concomitant]
  4. ACTRAPID [Concomitant]
  5. LANTUS [Concomitant]
  6. RAMIPRIL [Concomitant]
  7. ALLOPURINOL [Concomitant]
  8. LANSOPRAZOLE [Concomitant]

REACTIONS (2)
  - Drug interaction [None]
  - International normalised ratio increased [None]
